FAERS Safety Report 8827419 (Version 1)
Quarter: 2012Q4

REPORT INFORMATION
  Report Type: Report from Study
  Country: US (occurrence: US)
  Receive Date: 20121005
  Receipt Date: 20121005
  Transmission Date: 20130627
  Serious: Yes (Hospitalization)
  Sender: FDA-Public Use
  Company Number: US-ABBOTT-12P-163-0969583-00

PATIENT
  Sex: Female

DRUGS (2)
  1. HUMIRA 40 MG/0.8 ML PEN [Suspect]
     Indication: PSORIATIC ARTHROPATHY
     Route: 058
     Dates: start: 201204
  2. HUMIRA 40 MG/0.8 ML PEN [Suspect]

REACTIONS (5)
  - Convulsion [Unknown]
  - Diverticulum [Unknown]
  - Diverticulitis [Unknown]
  - Tremor [Unknown]
  - Psoriatic arthropathy [Unknown]
